FAERS Safety Report 20166337 (Version 3)
Quarter: 2022Q1

REPORT INFORMATION
  Report Type: Report from Study
  Country: US (occurrence: US)
  Receive Date: 20211209
  Receipt Date: 20220111
  Transmission Date: 20220424
  Serious: Yes (Hospitalization, Other)
  Sender: FDA-Public Use
  Company Number: US-SEATTLE GENETICS-2021SGN04781

PATIENT
  Sex: Female

DRUGS (2)
  1. TUCATINIB [Suspect]
     Active Substance: TUCATINIB
     Indication: Product used for unknown indication
     Dosage: 150 MG
     Route: 065
  2. CAPECITABINE [Suspect]
     Active Substance: CAPECITABINE
     Indication: Product used for unknown indication
     Dosage: UNK
     Route: 065

REACTIONS (19)
  - Fall [Unknown]
  - Rib fracture [Unknown]
  - COVID-19 [Unknown]
  - Lung neoplasm malignant [Unknown]
  - Hepatic cancer [Unknown]
  - Blindness unilateral [Unknown]
  - Blindness [Unknown]
  - Type 1 diabetes mellitus [Unknown]
  - Hospitalisation [Unknown]
  - Cataract [Unknown]
  - Eye infection [Unknown]
  - Cystitis [Unknown]
  - Pain in extremity [Unknown]
  - Peripheral swelling [Unknown]
  - Pruritus [Unknown]
  - Blood glucose decreased [Unknown]
  - Rash [Unknown]
  - Skin exfoliation [Unknown]
  - SARS-CoV-2 test positive [Unknown]
